FAERS Safety Report 24284371 (Version 1)
Quarter: 2024Q3

REPORT INFORMATION
  Report Type: Spontaneous
  Country: FR (occurrence: PF)
  Receive Date: 20240905
  Receipt Date: 20240905
  Transmission Date: 20241016
  Serious: Yes (Congenital Anomaly)
  Sender: EMD SERONO INC
  Company Number: None

PATIENT
  Age: 0 Day
  Sex: Female
  Weight: 3 kg

DRUGS (3)
  1. METFORMIN [Suspect]
     Active Substance: METFORMIN HYDROCHLORIDE
     Indication: Diabetes mellitus
     Dosage: 2/ DAY?DRUG TAKEN BY MOTHER
     Route: 064
     Dates: start: 20220414, end: 20220506
  2. SITAGLIPTIN [Suspect]
     Active Substance: SITAGLIPTIN
     Indication: Diabetes mellitus
     Dosage: 2/ DAY?DRUG TAKEN BY MOTHER
     Route: 064
     Dates: start: 20220414, end: 20220506
  3. DULAGLUTIDE [Suspect]
     Active Substance: DULAGLUTIDE
     Indication: Diabetes mellitus
     Dosage: 75 MG/WEEK?DRUG TAKEN BY MOTHER
     Route: 064
     Dates: start: 20220414, end: 20220428

REACTIONS (3)
  - Atrial septal defect [Unknown]
  - Patent ductus arteriosus [Unknown]
  - Foetal exposure during pregnancy [Recovered/Resolved]

NARRATIVE: CASE EVENT DATE: 20221215
